FAERS Safety Report 7077809-1 (Version None)
Quarter: 2010Q4

REPORT INFORMATION
  Report Type: 
  Country: None (occurrence: None)
  Receive Date: 20101101
  Receipt Date: 20101019
  Transmission Date: 20110411
  Serious: Yes (Other)
  Sender: FDA-Public Use
  Company Number: PHHY2010IT70582

PATIENT
  Sex: Male

DRUGS (4)
  1. TASIGNA [Suspect]
     Dosage: 1200 MG DAILY
     Route: 048
     Dates: start: 20100511, end: 20100513
  2. BENTELAN [Concomitant]
  3. GLIBOMET [Concomitant]
  4. ASPIRIN [Concomitant]

REACTIONS (5)
  - DEAFNESS [None]
  - DECREASED APPETITE [None]
  - DYSGEUSIA [None]
  - HEADACHE [None]
  - WEIGHT DECREASED [None]
